FAERS Safety Report 5092257-1 (Version None)
Quarter: 2006Q3

REPORT INFORMATION
  Report Type: 
  Country: None (occurrence: None)
  Receive Date: 20060828
  Receipt Date: 20060828
  Transmission Date: 20061208
  Serious: Yes (Other)
  Sender: FDA-Public Use
  Company Number: None

PATIENT
  Age: 41 Year
  Sex: Female
  Weight: 58.9676 kg

DRUGS (1)
  1. CIPRO [Suspect]
     Indication: BACTERIAL INFECTION
     Dosage: 2 PER DAY PO
     Route: 048
     Dates: start: 20060812, end: 20060822

REACTIONS (8)
  - BACK PAIN [None]
  - DRUG EFFECT DECREASED [None]
  - LIMB IMMOBILISATION [None]
  - MOVEMENT DISORDER [None]
  - MUSCULOSKELETAL PAIN [None]
  - MYALGIA [None]
  - NECK PAIN [None]
  - TENDON DISORDER [None]
